FAERS Safety Report 7638582-9 (Version None)
Quarter: 2011Q3

REPORT INFORMATION
  Report Type: 
  Country: None (occurrence: None)
  Receive Date: 20110727
  Receipt Date: 20110721
  Transmission Date: 20111222
  Serious: Yes (Death)
  Sender: FDA-Public Use
  Company Number: DE-ASTELLAS-2011EU004844

PATIENT
  Age: 64 Year
  Sex: Male

DRUGS (3)
  1. CELLCEPT [Suspect]
     Indication: LIVER TRANSPLANT
     Dosage: 1 G, BID
     Route: 042
     Dates: start: 20110422
  2. PROGRAF [Suspect]
     Indication: LIVER TRANSPLANT
     Dosage: 0.5 G, UID/QD
     Route: 042
     Dates: start: 20110422
  3. TACROLIMUS [Suspect]
     Indication: LIVER TRANSPLANT
     Dosage: UNK
     Route: 065

REACTIONS (1)
  - SEPSIS [None]
